FAERS Safety Report 6965289-3 (Version None)
Quarter: 2010Q3

REPORT INFORMATION
  Report Type: 
  Country: None (occurrence: None)
  Receive Date: 20100903
  Receipt Date: 20100826
  Transmission Date: 20110219
  Serious: Yes (Death)
  Sender: FDA-Public Use
  Company Number: US-MYLANLABS-2010S1015706

PATIENT
  Age: 51 Year
  Sex: Female

DRUGS (9)
  1. MILNACIPRAN [Suspect]
  2. OXYCODONE [Suspect]
  3. LORAZEPAM [Suspect]
  4. DIAZEPAM [Suspect]
  5. TEMAZEPAM [Suspect]
  6. OXAZEPAM [Suspect]
  7. CARISOPRODOL [Suspect]
  8. CITALOPRAM HYDROBROMIDE [Suspect]
  9. PROMETHAZINE [Suspect]

REACTIONS (2)
  - COMPLETED SUICIDE [None]
  - DRUG TOXICITY [None]
